FAERS Safety Report 7214249-6 (Version None)
Quarter: 2011Q1

REPORT INFORMATION
  Report Type: 
  Country: None (occurrence: None)
  Receive Date: 20110107
  Receipt Date: 20101214
  Transmission Date: 20110831
  Serious: No
  Sender: FDA-Public Use
  Company Number: US-B.I. PHARMACEUTICALS,INC./RIDGEFIELD-2010-BP-14537BP

PATIENT
  Sex: Male

DRUGS (5)
  1. AMLODIPINE [Concomitant]
     Indication: HYPERTENSION
     Dosage: 5 MG
     Route: 048
  2. PRADAXA [Suspect]
     Indication: ATRIAL FIBRILLATION
     Dosage: 300 MG
     Route: 048
     Dates: start: 20101201
  3. LIPITOR [Concomitant]
     Indication: BLOOD CHOLESTEROL INCREASED
     Dosage: 10 MG
     Route: 048
  4. TOPROL-XL [Concomitant]
     Indication: HYPERTENSION
     Dosage: 100 MG
     Route: 048
  5. DIOVAN [Concomitant]
     Indication: HYPERTENSION
     Dosage: 320 MG
     Route: 048

REACTIONS (2)
  - INTERNATIONAL NORMALISED RATIO [None]
  - PROTHROMBIN TIME SHORTENED [None]
